FAERS Safety Report 10871504 (Version 1)
Quarter: 2015Q1

REPORT INFORMATION
  Report Type: Spontaneous
  Country: US (occurrence: None)
  Receive Date: 20150223
  Receipt Date: 20150223
  Transmission Date: 20150721
  Serious: Yes (Other)
  Sender: FDA-Public Use
  Company Number: None

PATIENT
  Age: 61 Year
  Sex: Female

DRUGS (1)
  1. SIMPONI [Suspect]
     Active Substance: GOLIMUMAB
     Indication: COLITIS ULCERATIVE
     Dosage: SUBCUTANEOUS 057, EVERY 4 WEEKS?INJECTABLE
     Route: 058
     Dates: start: 20140310

REACTIONS (5)
  - Trigger finger [None]
  - Arthropathy [None]
  - Arthralgia [None]
  - Joint crepitation [None]
  - Nodule [None]

NARRATIVE: CASE EVENT DATE: 20150219
